FAERS Safety Report 21166167 (Version 1)
Quarter: 2022Q3

REPORT INFORMATION
  Report Type: Spontaneous
  Country: DE (occurrence: DE)
  Receive Date: 20220803
  Receipt Date: 20220803
  Transmission Date: 20221026
  Serious: Yes (Other)
  Sender: FDA-Public Use
  Company Number: None

PATIENT
  Age: 63 Year
  Sex: Male
  Weight: 82 kg

DRUGS (6)
  1. DROPERIDOL [Suspect]
     Active Substance: DROPERIDOL
     Indication: Radiculopathy
     Dosage: UNKNOWN
     Route: 065
     Dates: start: 20220706, end: 20220707
  2. DROPERIDOL [Suspect]
     Active Substance: DROPERIDOL
     Indication: Analgesic therapy
  3. DROPERIDOL [Suspect]
     Active Substance: DROPERIDOL
     Indication: Intervertebral disc protrusion
  4. METAMIZOLE SODIUM [Suspect]
     Active Substance: METAMIZOLE SODIUM
     Indication: Radiculopathy
     Dosage: UNKNOWN
     Route: 065
     Dates: start: 20220706, end: 20220707
  5. METAMIZOLE SODIUM [Suspect]
     Active Substance: METAMIZOLE SODIUM
     Indication: Analgesic therapy
  6. METAMIZOLE SODIUM [Suspect]
     Active Substance: METAMIZOLE SODIUM
     Indication: Intervertebral disc protrusion

REACTIONS (4)
  - Neck pain [Recovered/Resolved]
  - Muscle spasms [Recovered/Resolved]
  - Blood pressure increased [Recovered/Resolved]
  - Myalgia [Recovered/Resolved]

NARRATIVE: CASE EVENT DATE: 20220707
